FAERS Safety Report 14192561 (Version 1)
Quarter: 2017Q4

REPORT INFORMATION
  Report Type: Spontaneous
  Country: US (occurrence: US)
  Receive Date: 20171115
  Receipt Date: 20171115
  Transmission Date: 20180321
  Serious: No
  Sender: FDA-Public Use
  Company Number: US-WARNER CHILCOTT-2017-000056

PATIENT
  Sex: Female

DRUGS (1)
  1. LO LOESTRIN FE [Suspect]
     Active Substance: ETHINYL ESTRADIOL\NORETHINDRONE ACETATE
     Indication: CONTRACEPTION
     Dosage: 1 TABLET DAILY
     Route: 048
     Dates: start: 201611

REACTIONS (4)
  - Metrorrhagia [Recovered/Resolved]
  - Breast tenderness [Not Recovered/Not Resolved]
  - Drug dose omission [Unknown]
  - Abdominal pain [Recovering/Resolving]

NARRATIVE: CASE EVENT DATE: 201612
